FAERS Safety Report 6522838-7 (Version None)
Quarter: 2009Q4

REPORT INFORMATION
  Report Type: 
  Country: None (occurrence: None)
  Receive Date: 20091222
  Receipt Date: 20091207
  Transmission Date: 20100525
  Serious: Yes (Congenital Anomaly, Other)
  Sender: FDA-Public Use
  Company Number: 456471

PATIENT

DRUGS (7)
  1. ONDANSETRON [Suspect]
     Indication: VOMITING
     Dosage: 4 MG, 3 DAY, TRANSPLACENTAL 4 MG, 2 DAY, TRANSPLACENAL
     Route: 064
     Dates: start: 20080112, end: 20080114
  2. ONDANSETRON [Suspect]
     Indication: VOMITING
     Dosage: 4 MG, 3 DAY, TRANSPLACENTAL 4 MG, 2 DAY, TRANSPLACENAL
     Route: 064
     Dates: start: 20080114
  3. CYCLIZINE [Concomitant]
  4. FOLIC ACID [Concomitant]
  5. METOCLOPRAMIDE [Concomitant]
  6. PROMETHAZINE [Concomitant]
  7. THIAMINE [Concomitant]

REACTIONS (10)
  - ABORTION INDUCED [None]
  - CONGENITAL HYDRONEPHROSIS [None]
  - DIAPHRAGMATIC APLASIA [None]
  - FOETAL GROWTH RETARDATION [None]
  - FOETAL MALFORMATION [None]
  - GASTROSCHISIS [None]
  - HEART DISEASE CONGENITAL [None]
  - MATERNAL DRUGS AFFECTING FOETUS [None]
  - PULMONARY HYPOPLASIA [None]
  - SPINAL DEFORMITY [None]
